FAERS Safety Report 19174034 (Version 1)
Quarter: 2021Q2

REPORT INFORMATION
  Report Type: Spontaneous
  Country: US (occurrence: US)
  Receive Date: 20210423
  Receipt Date: 20210423
  Transmission Date: 20210717
  Serious: No
  Sender: FDA-Public Use
  Company Number: US-PFIZER INC-2021349812

PATIENT
  Age: 73 Year
  Sex: Female

DRUGS (2)
  1. INLYTA [Suspect]
     Active Substance: AXITINIB
     Indication: RENAL CANCER
     Dosage: 5 MG
  2. GLUCERNA [Concomitant]
     Active Substance: AMINO ACIDS\DEXTROSE\ELECTROLYTES NOS\SOYBEAN OIL\VITAMINS
     Dosage: UNK

REACTIONS (6)
  - Hypertension [Unknown]
  - Decreased appetite [Unknown]
  - Diarrhoea [Recovered/Resolved]
  - Back pain [Unknown]
  - Oropharyngeal pain [Unknown]
  - Rash [Unknown]

NARRATIVE: CASE EVENT DATE: 20210325
